FAERS Safety Report 12476950 (Version 1)
Quarter: 2016Q2

REPORT INFORMATION
  Report Type: Report from Study
  Country: US (occurrence: US)
  Receive Date: 20160617
  Receipt Date: 20160617
  Transmission Date: 20160815
  Serious: Yes (Hospitalization, Other)
  Sender: FDA-Public Use
  Company Number: US-ABBVIE-16K-163-1651763-00

PATIENT
  Age: 31 Year
  Sex: Female

DRUGS (1)
  1. HUMIRA [Suspect]
     Active Substance: ADALIMUMAB
     Indication: PSORIASIS
     Route: 058
     Dates: start: 20160520

REACTIONS (3)
  - Oropharyngeal pain [Unknown]
  - Pharyngitis streptococcal [Recovering/Resolving]
  - Tonsillar hypertrophy [Unknown]

NARRATIVE: CASE EVENT DATE: 20160608
